FAERS Safety Report 6303998-X (Version None)
Quarter: 2009Q3

REPORT INFORMATION
  Report Type: 
  Country: None (occurrence: None)
  Receive Date: 20090810
  Receipt Date: 20090810
  Transmission Date: 20100115
  Serious: Yes (Hospitalization)
  Sender: FDA-Public Use
  Company Number: None

PATIENT
  Age: 81 Year
  Sex: Female
  Weight: 51 kg

DRUGS (13)
  1. DIGOXIN [Suspect]
     Indication: ATRIAL FIBRILLATION
     Dosage: 250 MCG DAILY PO (PRIOR TO ADMISSION)
     Route: 048
  2. DILTIAZEM [Concomitant]
  3. WARFARIN [Concomitant]
  4. PRAVASTATIN [Concomitant]
  5. FUROSEMIDE [Concomitant]
  6. CLONAZEPAM [Concomitant]
  7. DOXEPIN HCL [Concomitant]
  8. RANITIDINE [Concomitant]
  9. ASPIRIN [Concomitant]
  10. CLOPIDOGREL [Concomitant]
  11. POTASSIUM CHLORIDE [Concomitant]
  12. BRIMONIDINE [Concomitant]
  13. GUAIFENESIN LA [Concomitant]

REACTIONS (5)
  - ABDOMINAL PAIN [None]
  - DECREASED APPETITE [None]
  - DIVERTICULUM [None]
  - NAUSEA [None]
  - THERAPEUTIC AGENT TOXICITY [None]
